FAERS Safety Report 8002619-8 (Version None)
Quarter: 2011Q4

REPORT INFORMATION
  Report Type: 
  Country: None (occurrence: None)
  Receive Date: 20111222
  Receipt Date: 20111213
  Transmission Date: 20120403
  Serious: Yes (Death)
  Sender: FDA-Public Use
  Company Number: FR-GLAXOSMITHKLINE-B0735505A

PATIENT
  Sex: Male

DRUGS (4)
  1. BICNU [Suspect]
     Dosage: 1INJ THREE TIMES PER WEEK
     Route: 042
     Dates: start: 20110704, end: 20110713
  2. DIPROSONE [Suspect]
     Dosage: 1APP PER DAY
     Route: 061
     Dates: end: 20110713
  3. CLOBETASOL PROPIONATE [Suspect]
     Dosage: 1APP SEE DOSAGE TEXT
     Route: 061
     Dates: end: 20110712
  4. METHOTREXATE [Suspect]
     Dosage: 20MG WEEKLY
     Dates: start: 20110704, end: 20110711

REACTIONS (3)
  - LYMPHOPENIA [None]
  - STREPTOCOCCAL BACTERAEMIA [None]
  - NECROTISING FASCIITIS [None]
